FAERS Safety Report 8940067 (Version 1)
Quarter: 2012Q4

REPORT INFORMATION
  Report Type: 
  Country: US (occurrence: US)
  Receive Date: 20121203
  Receipt Date: 20121203
  Transmission Date: 20130627
  Serious: No
  Sender: FDA-Public Use
  Company Number: US-009507513-1211USA012746

PATIENT
  Sex: Male

DRUGS (1)
  1. SYLATRON [Suspect]
     Indication: MALIGNANT MELANOMA
     Dosage: UNK

REACTIONS (2)
  - Aggression [Not Recovered/Not Resolved]
  - Depression [Not Recovered/Not Resolved]
